FAERS Safety Report 14579107 (Version 1)
Quarter: 2018Q1

REPORT INFORMATION
  Report Type: Spontaneous
  Country: FR (occurrence: FR)
  Receive Date: 20180227
  Receipt Date: 20180227
  Transmission Date: 20180509
  Serious: Yes (Hospitalization)
  Sender: FDA-Public Use
  Company Number: FR-TEVA-2018-FR-860355

PATIENT
  Age: 80 Year
  Sex: Male
  Weight: 71 kg

DRUGS (3)
  1. AMOXICILLIN. [Suspect]
     Active Substance: AMOXICILLIN
     Indication: ERYSIPELAS
     Dosage: 6 GRAM DAILY;
     Route: 048
     Dates: start: 20170626, end: 20170630
  2. BACTRIM [Suspect]
     Active Substance: SULFAMETHOXAZOLE\TRIMETHOPRIM
     Indication: INFECTION
     Dosage: 2 DOSAGE FORMS DAILY;
     Route: 048
     Dates: start: 20170619, end: 20170626
  3. DALACINE 300 MG [Suspect]
     Active Substance: CLINDAMYCIN HYDROCHLORIDE
     Indication: ERYSIPELAS
     Dosage: 1800 MILLIGRAM DAILY;
     Route: 048
     Dates: start: 20170627, end: 20170629

REACTIONS (5)
  - Pyrexia [Recovering/Resolving]
  - Hyperleukocytosis [Recovering/Resolving]
  - Rash pustular [Recovering/Resolving]
  - Hepatic enzyme increased [Recovering/Resolving]
  - Eosinophilia [Recovering/Resolving]

NARRATIVE: CASE EVENT DATE: 20170626
